FAERS Safety Report 25947017 (Version 1)
Quarter: 2025Q4

REPORT INFORMATION
  Report Type: Report from Study
  Country: US (occurrence: US)
  Receive Date: 20251022
  Receipt Date: 20251022
  Transmission Date: 20260118
  Serious: Yes (Hospitalization)
  Sender: ROCHE
  Company Number: US-ROCHE-10000386708

PATIENT
  Age: 42 Year
  Sex: Female
  Weight: 66.68 kg

DRUGS (33)
  1. XOLAIR [Suspect]
     Active Substance: OMALIZUMAB
     Indication: Asthma
     Route: 058
     Dates: start: 20240920, end: 20250715
  2. XOLAIR [Suspect]
     Active Substance: OMALIZUMAB
     Indication: Hypersensitivity
     Route: 058
     Dates: start: 20250715
  3. XOLAIR [Suspect]
     Active Substance: OMALIZUMAB
     Indication: Anaphylactic reaction
  4. SPIRIVA [Concomitant]
     Active Substance: TIOTROPIUM BROMIDE MONOHYDRATE
     Indication: Asthma
     Dosage: 2 PUFFS OF 1.25 MCG
     Route: 055
     Dates: start: 202401
  5. SYMBICORT [Concomitant]
     Active Substance: BUDESONIDE\FORMOTEROL FUMARATE DIHYDRATE
     Indication: Asthma
     Dosage: 2 PUFFS OF 164.5 MCG. STARTED EARLY 2023
     Route: 055
     Dates: start: 2023
  6. QVAR [Concomitant]
     Active Substance: BECLOMETHASONE DIPROPIONATE
     Indication: Asthma
     Dosage: 2-4 80MCG PUFFS TWICE DAILY DEPENDING PEEK FLOW METER READING
     Route: 055
     Dates: start: 2022
  7. ALBUTEROL [Concomitant]
     Active Substance: ALBUTEROL
     Indication: Asthma
     Route: 055
  8. ALBUTEROL [Concomitant]
     Active Substance: ALBUTEROL
     Indication: Asthma
     Dosage: 2.5MG/3ML 0.083% SOLUTION
     Route: 055
  9. RACEPINEPHRINE [Concomitant]
     Active Substance: RACEPINEPHRINE
     Indication: Anaphylactic reaction
     Dosage: AS NEEDED FOR ANAPHYLACTIC REACTIONS UNTIL INTRAMUSCULAR EPINEPHRINE CAN BE GIVEN
     Route: 055
     Dates: start: 2025
  10. EPIPEN [Concomitant]
     Active Substance: EPINEPHRINE
     Indication: Anaphylactic reaction
     Route: 030
  11. NEFFY [Concomitant]
     Active Substance: EPINEPHRINE
     Indication: Anaphylactic reaction
     Dosage: 2MG AS NEEDED AND REPEAT EVERY 5 MINUTES AS NEEDED.
     Route: 045
  12. XYZAL [Concomitant]
     Active Substance: LEVOCETIRIZINE DIHYDROCHLORIDE
     Indication: Hypersensitivity
     Route: 048
     Dates: start: 2022, end: 202311
  13. XYZAL [Concomitant]
     Active Substance: LEVOCETIRIZINE DIHYDROCHLORIDE
     Route: 048
     Dates: start: 202311, end: 202507
  14. XYZAL [Concomitant]
     Active Substance: LEVOCETIRIZINE DIHYDROCHLORIDE
     Dosage: TWO 5MG TABLETS TWO TIMES DAILY
     Route: 048
     Dates: start: 202507
  15. FAMOTIDINE [Concomitant]
     Active Substance: FAMOTIDINE
     Indication: Hypersensitivity
     Route: 048
     Dates: start: 2023
  16. SINGULAIR [Concomitant]
     Active Substance: MONTELUKAST SODIUM
     Indication: Hypersensitivity
     Route: 048
     Dates: start: 202505
  17. IVABRADINE [Concomitant]
     Active Substance: IVABRADINE
     Indication: Inappropriate sinus tachycardia
     Route: 048
     Dates: start: 202311
  18. CARDIZEM CD [Concomitant]
     Active Substance: DILTIAZEM HYDROCHLORIDE
     Indication: Inappropriate sinus tachycardia
     Route: 048
     Dates: start: 2024
  19. CARDIZEM CD [Concomitant]
     Active Substance: DILTIAZEM HYDROCHLORIDE
     Indication: Supraventricular tachycardia
  20. PRUCALOPRIDE [Concomitant]
     Active Substance: PRUCALOPRIDE
     Indication: Gastric hypomotility
     Route: 048
     Dates: start: 2024
  21. BUSPAR [Concomitant]
     Active Substance: BUSPIRONE HYDROCHLORIDE
     Indication: Anxiety
     Dosage: STARTED IN LATE 2023 OR EARLY 2024
     Route: 048
  22. LAMICTAL [Concomitant]
     Active Substance: LAMOTRIGINE
     Route: 048
     Dates: start: 2016
  23. SEROQUEL XR [Concomitant]
     Active Substance: QUETIAPINE FUMARATE
     Route: 048
     Dates: start: 2016
  24. VILAZODONE [Concomitant]
     Active Substance: VILAZODONE
     Indication: Depression
     Route: 048
     Dates: start: 202505
  25. ALDACTONE [Concomitant]
     Active Substance: SPIRONOLACTONE
     Dosage: STARTED AT LEAST 20 YEARS AGO IF NOT MORE
     Route: 048
  26. XANAX [Concomitant]
     Active Substance: ALPRAZOLAM
     Indication: Anxiety
     Dosage: AT NIGHT
     Route: 048
     Dates: start: 2016
  27. XANAX [Concomitant]
     Active Substance: ALPRAZOLAM
     Dosage: IN ADDITION TO 0.5 DAILY CAN TAKE UP TO TWO MORE TIMES DAILY AS NEEDED.
     Route: 048
     Dates: start: 2016
  28. BENADRYL [Concomitant]
     Active Substance: DIPHENHYDRAMINE HYDROCHLORIDE
     Indication: Hypersensitivity
     Route: 048
  29. APREPITANT [Concomitant]
     Active Substance: APREPITANT
     Indication: Nausea
     Dosage: 40MG AS NEEDED FOR NAUSEA
     Route: 048
     Dates: start: 2025
  30. APREPITANT [Concomitant]
     Active Substance: APREPITANT
     Indication: Vomiting
     Dosage: 80MG AS NEEDED FOR VOMITING
     Route: 048
     Dates: start: 2025
  31. ZOFRAN [Concomitant]
     Active Substance: ONDANSETRON HYDROCHLORIDE
     Indication: Nausea
     Dosage: 1 TABLET EVERY 8 HOURS AS NEEDED
     Route: 048
     Dates: start: 2019
  32. ZOFRAN [Concomitant]
     Active Substance: ONDANSETRON HYDROCHLORIDE
     Indication: Vomiting
  33. SULFASALAZINE [Concomitant]
     Active Substance: SULFASALAZINE

REACTIONS (9)
  - Off label use [Unknown]
  - Wrong technique in product usage process [Unknown]
  - Neuropathy peripheral [Not Recovered/Not Resolved]
  - Product dose omission issue [Unknown]
  - Exposure via skin contact [Unknown]
  - Device defective [Unknown]
  - Needle issue [Unknown]
  - Hypokalaemia [Unknown]
  - Anaphylactic reaction [Recovered/Resolved]

NARRATIVE: CASE EVENT DATE: 20240920
